FAERS Safety Report 4772031-3 (Version None)
Quarter: 2005Q3

REPORT INFORMATION
  Report Type: 
  Country: None (occurrence: None)
  Receive Date: 20050916
  Receipt Date: 20050901
  Transmission Date: 20060218
  Serious: Yes (Other)
  Sender: FDA-Public Use
  Company Number: CHWYE945001SEP05

PATIENT
  Sex: Female
  Weight: 48 kg

DRUGS (6)
  1. ENBREL [Suspect]
     Indication: ANKYLOSING SPONDYLITIS
     Route: 058
     Dates: start: 20040727
  2. ENBREL [Suspect]
     Indication: RHEUMATOID ARTHRITIS
  3. PROXEN [Concomitant]
     Indication: BONE PAIN
     Route: 048
     Dates: start: 20020101
  4. FOLIC ACID [Concomitant]
     Route: 048
     Dates: start: 20050203
  5. KLIOGEST [Concomitant]
     Indication: HORMONE REPLACEMENT THERAPY
     Route: 048
     Dates: start: 20020101
  6. METHOTREXATE [Concomitant]

REACTIONS (1)
  - WEIGHT DECREASED [None]
